FAERS Safety Report 5217880-2 (Version None)
Quarter: 2007Q1

REPORT INFORMATION
  Report Type: 
  Country: None (occurrence: None)
  Receive Date: 20070124
  Receipt Date: 20070116
  Transmission Date: 20070707
  Serious: Yes (Hospitalization, Other)
  Sender: FDA-Public Use
  Company Number: DE-ABBOTT-07P-062-0355448-00

PATIENT
  Sex: Female

DRUGS (2)
  1. HUMIRA [Suspect]
     Indication: RHEUMATOID ARTHRITIS
     Route: 058
     Dates: start: 20021101, end: 20060501
  2. METHOTREXATE SODIUM [Concomitant]
     Indication: RHEUMATOID ARTHRITIS
     Dates: end: 20060801

REACTIONS (7)
  - C-REACTIVE PROTEIN INCREASED [None]
  - OSTEOARTHRITIS [None]
  - OSTEOMYELITIS [None]
  - PERIOSTITIS [None]
  - RHEUMATOID ARTHRITIS [None]
  - SOFT TISSUE INFECTION [None]
  - STRESS FRACTURE [None]
